FAERS Safety Report 18963024 (Version 2)
Quarter: 2021Q2

REPORT INFORMATION
  Report Type: Report from Study
  Country: FR (occurrence: FR)
  Receive Date: 20210303
  Receipt Date: 20210614
  Transmission Date: 20210717
  Serious: Yes (Hospitalization)
  Sender: FDA-Public Use
  Company Number: NVSC2021FR037267

PATIENT
  Age: 73 Year
  Sex: Female
  Weight: 54.65 kg

DRUGS (16)
  1. CAPMATINIB [Suspect]
     Active Substance: CAPMATINIB
     Dosage: 300 MG, BID
     Route: 048
     Dates: start: 20210209
  2. CAPMATINIB [Suspect]
     Active Substance: CAPMATINIB
     Indication: NON-SMALL CELL LUNG CANCER
     Dosage: 400 MG, BID
     Route: 048
     Dates: start: 20201210, end: 20210128
  3. ATENOLOL. [Concomitant]
     Active Substance: ATENOLOL
     Indication: ATRIAL FIBRILLATION
     Dosage: 50 MG, QD
     Route: 048
     Dates: start: 20201209, end: 20210212
  4. INNOVAIR [Concomitant]
     Active Substance: BECLOMETHASONE DIPROPIONATE\FORMOTEROL
     Indication: NON-SMALL CELL LUNG CANCER
     Dosage: 200/6 UG, BID
     Route: 055
     Dates: start: 20201127
  5. BISOPROLOL [Concomitant]
     Active Substance: BISOPROLOL
     Indication: ATRIAL FIBRILLATION
     Dosage: 2.5 MG, QD
     Route: 048
     Dates: start: 20201207, end: 20201209
  6. NO TREATMENT RECEIVED [Suspect]
     Active Substance: UNSPECIFIED INGREDIENT
     Indication: NON-SMALL CELL LUNG CANCER METASTATIC
     Dosage: NO TREATMENT
     Route: 065
  7. SOLUPRED [Concomitant]
     Indication: OEDEMA
     Dosage: 40 MG, QD
     Route: 048
     Dates: start: 20210129, end: 20210201
  8. PDR001 [Suspect]
     Active Substance: SPARTALIZUMAB
     Indication: NON-SMALL CELL LUNG CANCER METASTATIC
     Dosage: 400 MG, Q4S
     Route: 042
     Dates: start: 20201210, end: 20210106
  9. ELIQUIS [Concomitant]
     Active Substance: APIXABAN
     Indication: RESPIRATORY DISTRESS
     Dosage: 5 MG, BID
     Route: 048
     Dates: start: 20201208
  10. AERIUS [Concomitant]
     Indication: PROPHYLAXIS
     Dosage: 5 MG, QD
     Route: 048
     Dates: start: 20210223
  11. LASILIX [Concomitant]
     Active Substance: FUROSEMIDE
     Indication: OEDEMA
     Dosage: 20 MG, QD
     Route: 048
     Dates: start: 20210129, end: 20210205
  12. ATENOLOL. [Concomitant]
     Active Substance: ATENOLOL
     Dosage: 20 MG, QD
     Route: 048
     Dates: start: 20210213
  13. PDR001 [Suspect]
     Active Substance: SPARTALIZUMAB
     Dosage: 400 MG, Q4S
     Route: 065
     Dates: start: 20210209
  14. LASILIX [Concomitant]
     Active Substance: FUROSEMIDE
     Dosage: 20 MG, QD
     Route: 065
     Dates: start: 20210213
  15. PARACETAMOL [Concomitant]
     Active Substance: ACETAMINOPHEN
     Indication: GENERAL PHYSICAL CONDITION
     Dosage: 1000 MG, PRN
     Route: 065
     Dates: start: 20201209, end: 20201210
  16. AUGMENTIN [Concomitant]
     Active Substance: AMOXICILLIN\CLAVULANATE POTASSIUM
     Indication: PERIPHERAL SWELLING
     Dosage: 1000/125 MG, TID
     Route: 048
     Dates: start: 20210210, end: 20210217

REACTIONS (1)
  - Pleurisy [Recovered/Resolved]

NARRATIVE: CASE EVENT DATE: 20210129
